FAERS Safety Report 7421218-X (Version None)
Quarter: 2011Q2

REPORT INFORMATION
  Report Type: 
  Country: None (occurrence: None)
  Receive Date: 20110418
  Receipt Date: 20110412
  Transmission Date: 20111010
  Serious: Yes (Hospitalization, Other)
  Sender: FDA-Public Use
  Company Number: US-ALEXION-A201000797

PATIENT
  Sex: Female

DRUGS (9)
  1. WARFARIN SODIUM [Concomitant]
     Dosage: UNK
     Route: 048
  2. DUONEB [Concomitant]
     Dosage: UNK
     Dates: start: 20100704
  3. OMEPRAZOLE [Concomitant]
     Dosage: UNK
     Route: 048
  4. MULTI-VITAMINS [Concomitant]
     Dosage: UNK
     Route: 048
  5. CALCIUM [Concomitant]
     Dosage: UNK
     Route: 048
  6. SOLIRIS [Suspect]
     Dosage: 900 MG, Q2W
     Route: 042
  7. SENNA                              /00142201/ [Concomitant]
     Dosage: UNK
     Route: 048
  8. TACROLIMUS [Concomitant]
     Indication: IMMUNOSUPPRESSION
     Dosage: UNK
     Route: 048
  9. SOLIRIS [Suspect]
     Indication: PAROXYSMAL NOCTURNAL HAEMOGLOBINURIA
     Dosage: 600 MBQ, QW X 4
     Route: 042
     Dates: start: 20090601

REACTIONS (2)
  - ABDOMINAL ABSCESS [None]
  - SEPSIS [None]
